FAERS Safety Report 12705168 (Version 5)
Quarter: 2017Q3

REPORT INFORMATION
  Report Type: Report from Study
  Country: CA (occurrence: CA)
  Receive Date: 20160831
  Receipt Date: 20170808
  Transmission Date: 20171127
  Serious: Yes (Other)
  Sender: FDA-Public Use
  Company Number: CA-GILEAD-2016-0213788

PATIENT
  Age: 66 Year
  Sex: Male
  Weight: 76.92 kg

DRUGS (4)
  1. IBAVYR [Suspect]
     Active Substance: RIBAVIRIN
     Indication: CHRONIC HEPATITIS C
     Dosage: 600 MG, BID
     Route: 048
     Dates: start: 20150624, end: 20150917
  2. ELAVIL [Concomitant]
     Active Substance: AMITRIPTYLINE HYDROCHLORIDE
  3. CIALIS [Concomitant]
     Active Substance: TADALAFIL
  4. LEDIPASVIR/SOFOSBUVIR [Suspect]
     Active Substance: LEDIPASVIR\SOFOSBUVIR
     Indication: CHRONIC HEPATITIS C
     Dosage: 1 DF, QD
     Route: 048
     Dates: start: 20150624, end: 20150917

REACTIONS (7)
  - Hepatitis C [Not Recovered/Not Resolved]
  - Hepatocellular carcinoma [Recovering/Resolving]
  - Drug ineffective [Not Recovered/Not Resolved]
  - Hepatectomy [Recovered/Resolved]
  - Genotype drug resistance test positive [Unknown]
  - Hepatic lesion [Unknown]
  - Treatment failure [Not Recovered/Not Resolved]

NARRATIVE: CASE EVENT DATE: 20150929
